FAERS Safety Report 11759468 (Version 1)
Quarter: 2015Q4

REPORT INFORMATION
  Report Type: Spontaneous
  Country: US (occurrence: US)
  Receive Date: 20151120
  Receipt Date: 20151120
  Transmission Date: 20160304
  Serious: No
  Sender: FDA-Public Use
  Company Number: US-ELI_LILLY_AND_COMPANY-US201210003042

PATIENT
  Sex: Female

DRUGS (2)
  1. FORTEO [Suspect]
     Active Substance: TERIPARATIDE
     Dosage: 20 UG, QD
  2. FORTEO [Suspect]
     Active Substance: TERIPARATIDE
     Indication: OSTEOPOROSIS
     Dosage: 20 UG, QD
     Dates: start: 20120829

REACTIONS (7)
  - Constipation [Not Recovered/Not Resolved]
  - Dyspnoea [Unknown]
  - Discomfort [Unknown]
  - Headache [Unknown]
  - Asthenia [Unknown]
  - Muscular weakness [Unknown]
  - Nausea [Unknown]
